FAERS Safety Report 9524969 (Version 1)
Quarter: 2013Q1

REPORT INFORMATION
  Report Type: Spontaneous
  Country: US (occurrence: None)
  Receive Date: 20130314
  Receipt Date: 20130314
  Transmission Date: 20140127
  Serious: No
  Sender: FDA-Public Use
  Company Number: 1301USA002035

PATIENT
  Age: 58 Year
  Sex: Male
  Weight: 81.6 kg

DRUGS (12)
  1. PEGINTRON [Suspect]
     Indication: HEPATITIS C
     Dosage: 120 MICROGRAM, QW, SUBCUTNEOUS
     Route: 058
  2. VICTRELIS [Suspect]
     Indication: HEPATITIS C
     Dosage: 800 MG, TID, ORAL
     Route: 048
  3. RIBAVIRIN [Suspect]
     Dosage: ORAL
     Route: 048
  4. VITAMIN E (VITAMIN E) CAPSULE [Concomitant]
  5. OMEGA-3 MARINE TRIGLYCERIDES (OMEGA-3 MARINE TRIGLYCERIDES) [Concomitant]
  6. VITAMIN B (UNSPECIFIED) (VITAMIN B (UNSPECIFIED) TABLET [Concomitant]
  7. VITAMIN B COMPLEX (VITAMIN B COMPLEX) TABLET [Concomitant]
  8. ASCORBIC ACID (ASCORBIC ACID) CAPSULE, 500 MG [Concomitant]
  9. SAW PALMETTO (SAW PALMETTO) CAPSULE [Concomitant]
  10. PROTEIN (UNSPECIFIED) (PROTEIN (UNSEPCIFIED)) POWDER [Concomitant]
  11. LORTAB (ACETAMINOPHEN, HYDROCODONE BITARTRATE) TABLET [Concomitant]
  12. XANAX (ALPRAZOLAM) TABLET, 0.5 MG [Concomitant]

REACTIONS (4)
  - Dysgeusia [None]
  - Dyspnoea [None]
  - Feeling abnormal [None]
  - Fatigue [None]
